FAERS Safety Report 7592492-4 (Version None)
Quarter: 2011Q3

REPORT INFORMATION
  Report Type: 
  Country: None (occurrence: None)
  Receive Date: 20110706
  Receipt Date: 20110624
  Transmission Date: 20111222
  Serious: Yes (Hospitalization, Other)
  Sender: FDA-Public Use
  Company Number: US-BAYER-2011-023836

PATIENT
  Age: 25 Year
  Sex: Female
  Weight: 126.98 kg

DRUGS (5)
  1. ACETAMINOPHEN [Concomitant]
     Indication: HEADACHE
     Dosage: UNK UNK, PRN
  2. +#8220;PEPTO+#8221; [Concomitant]
     Indication: GASTRIC DISORDER
     Dosage: UNK UNK, PRN
  3. ADVIL COLD AND SINUS [Concomitant]
     Indication: NASOPHARYNGITIS
     Dosage: UNK UNK, PRN
  4. YASMIN [Suspect]
     Indication: PRODUCT USED FOR UNKNOWN INDICATION
     Dosage: UNK
     Route: 048
     Dates: start: 20030101, end: 20070101
  5. CLARITIN [Concomitant]
     Indication: MULTIPLE ALLERGIES
     Dosage: UNK UNK, PRN

REACTIONS (2)
  - THROMBOSIS [None]
  - PULMONARY EMBOLISM [None]
